APPROVED DRUG PRODUCT: CEFAZOLIN SODIUM
Active Ingredient: CEFAZOLIN SODIUM
Strength: EQ 1GM BASE/VIAL
Dosage Form/Route: INJECTABLE;INJECTION
Application: A065047 | Product #002 | TE Code: AP
Applicant: HIKMA FARMACEUTICA PORTUGAL LDA
Approved: Sep 18, 2001 | RLD: No | RS: Yes | Type: RX